FAERS Safety Report 6866746-0 (Version None)
Quarter: 2010Q3

REPORT INFORMATION
  Report Type: 
  Country: None (occurrence: None)
  Receive Date: 20100722
  Receipt Date: 20100709
  Transmission Date: 20110219
  Serious: Yes (Other)
  Sender: FDA-Public Use
  Company Number: PHHY2010JP16240

PATIENT
  Age: 70 Year
  Sex: Male
  Weight: 53 kg

DRUGS (3)
  1. ZOMETA [Suspect]
     Indication: METASTASES TO BONE
     Dosage: 4MG (PER ADMINISTRATION)
     Route: 042
     Dates: start: 20090722, end: 20100217
  2. DOCETAXEL [Concomitant]
     Dosage: UNK
     Route: 042
  3. DECADRON [Concomitant]
     Route: 042

REACTIONS (7)
  - BONE DISORDER [None]
  - DENTAL FISTULA [None]
  - OSTEONECROSIS OF JAW [None]
  - PAIN [None]
  - PURULENT DISCHARGE [None]
  - QUALITY OF LIFE DECREASED [None]
  - TOOTH DISORDER [None]
